FAERS Safety Report 6243124-9 (Version None)
Quarter: 2009Q2

REPORT INFORMATION
  Report Type: 
  Country: None (occurrence: None)
  Receive Date: 20090622
  Receipt Date: 20090616
  Transmission Date: 20091009
  Serious: Yes (Disabling)
  Sender: FDA-Public Use
  Company Number: TOR 2009-0041

PATIENT
  Age: 85 Year
  Sex: Female

DRUGS (1)
  1. FARESTON [Suspect]
     Indication: BREAST CANCER
     Dosage: 120 MG ORAL
     Route: 048
     Dates: start: 20080826, end: 20081203

REACTIONS (1)
  - ANAEMIA [None]
